FAERS Safety Report 7808053-5 (Version None)
Quarter: 2011Q4

REPORT INFORMATION
  Report Type: 
  Country: None (occurrence: None)
  Receive Date: 20111011
  Receipt Date: 20111011
  Transmission Date: 20120403
  Serious: Yes (Other)
  Sender: FDA-Public Use
  Company Number: US-BAYER-200916709NA

PATIENT
  Age: 34 Year
  Sex: Male

DRUGS (27)
  1. MAGNEVIST [Suspect]
     Indication: NUCLEAR MAGNETIC RESONANCE IMAGING
  2. CALCIUM ACETATE [Concomitant]
  3. SENSIPAR [Concomitant]
  4. VENLAFAXINE [Concomitant]
  5. ACCUPRIL [Concomitant]
  6. COUMADIN [Concomitant]
  7. LACTULOSE [Concomitant]
  8. MULTIHANCE [Suspect]
     Indication: NUCLEAR MAGNETIC RESONANCE IMAGING
  9. OMEPRAZOLE [Concomitant]
  10. ASPIRIN [Concomitant]
  11. EPO [Concomitant]
  12. OMNISCAN [Suspect]
     Indication: NUCLEAR MAGNETIC RESONANCE IMAGING
     Dosage: UNK
     Dates: start: 19990111, end: 19990111
  13. NORVASC [Concomitant]
  14. OPTIMARK [Suspect]
     Indication: NUCLEAR MAGNETIC RESONANCE IMAGING
  15. PROHANCE [Suspect]
     Indication: NUCLEAR MAGNETIC RESONANCE IMAGING
     Dosage: 17 ML, ONCE
     Dates: start: 20060815, end: 20060815
  16. ALPRAZOLAM [Concomitant]
  17. NEPHROX [ALUMINIUM HYDROXIDE] [Concomitant]
  18. RENA-VITE [Concomitant]
  19. PROHANCE [Suspect]
  20. METOPROLOL TARTRATE [Concomitant]
  21. NEPHROVITE [VIT C,VIT H,B5,B12,B9,B3,B6,B2,B1 HCL] [Concomitant]
  22. LISINOPRIL [Concomitant]
  23. OXYCODONE HCL [Concomitant]
  24. FOSRENOL [Concomitant]
  25. CHROMAGEN [ASCORBIC ACID,CYANOCOBALAMIN,FERROUS FUMARATE,FOLIC ACI [Concomitant]
  26. COREG [Concomitant]
  27. NIFEDIPINE [Concomitant]

REACTIONS (17)
  - JOINT RANGE OF MOTION DECREASED [None]
  - SKIN INDURATION [None]
  - MUSCULAR WEAKNESS [None]
  - JOINT CONTRACTURE [None]
  - NEPHROGENIC SYSTEMIC FIBROSIS [None]
  - ANXIETY [None]
  - SKIN HYPERPIGMENTATION [None]
  - SKIN TIGHTNESS [None]
  - HYPOAESTHESIA [None]
  - FIBROSIS [None]
  - GAIT DISTURBANCE [None]
  - DEPRESSION [None]
  - PAIN [None]
  - EMOTIONAL DISTRESS [None]
  - SKIN HYPERTROPHY [None]
  - SKIN PLAQUE [None]
  - INSOMNIA [None]
